FAERS Safety Report 5670592-3 (Version None)
Quarter: 2008Q1

REPORT INFORMATION
  Report Type: 
  Country: None (occurrence: None)
  Receive Date: 20080314
  Receipt Date: 20080314
  Transmission Date: 20080703
  Serious: Yes (Life-Threatening, Disabling)
  Sender: FDA-Public Use
  Company Number: None

PATIENT
  Age: 34 Year
  Sex: Female
  Weight: 61.2356 kg

DRUGS (5)
  1. MIRENA [Suspect]
     Indication: CONTRACEPTION
     Dates: start: 20061015, end: 20070911
  2. TYLENOL [Concomitant]
  3. UNISON [Concomitant]
  4. AMBIEN [Concomitant]
  5. SUPPLEMENTS [Concomitant]

REACTIONS (18)
  - ALOPECIA [None]
  - ANXIETY [None]
  - ARTHRALGIA [None]
  - DEPRESSION [None]
  - DRUG INEFFECTIVE [None]
  - DRY MOUTH [None]
  - FEELING ABNORMAL [None]
  - HYPOGLYCAEMIA [None]
  - IMMUNE SYSTEM DISORDER [None]
  - INSOMNIA [None]
  - LIBIDO DECREASED [None]
  - MUSCULOSKELETAL PAIN [None]
  - NERVOUS SYSTEM DISORDER [None]
  - PALPITATIONS [None]
  - SINUS DISORDER [None]
  - SUICIDAL IDEATION [None]
  - VAGINAL DISCHARGE [None]
  - WEIGHT INCREASED [None]
